FAERS Safety Report 24341771 (Version 3)
Quarter: 2024Q4

REPORT INFORMATION
  Report Type: Spontaneous
  Country: US (occurrence: US)
  Receive Date: 20240920
  Receipt Date: 20241028
  Transmission Date: 20250115
  Serious: Yes (Other)
  Sender: ABBVIE
  Company Number: US-ABBVIE-5928849

PATIENT
  Sex: Female

DRUGS (3)
  1. LUPRON [Suspect]
     Active Substance: LEUPROLIDE ACETATE
     Indication: Product used for unknown indication
     Route: 058
     Dates: start: 2023
  2. IBRANCE [Suspect]
     Active Substance: PALBOCICLIB
     Indication: Product used for unknown indication
     Route: 065
  3. ANASTROZOLE [Suspect]
     Active Substance: ANASTROZOLE
     Indication: Product used for unknown indication
     Route: 065

REACTIONS (29)
  - Neuropathy peripheral [Unknown]
  - Arthralgia [Not Recovered/Not Resolved]
  - Epistaxis [Recovered/Resolved]
  - Diarrhoea [Unknown]
  - Lymphadenectomy [Unknown]
  - Headache [Recovered/Resolved]
  - Fatigue [Recovered/Resolved]
  - Asthenopia [Recovered/Resolved]
  - Decreased appetite [Recovered/Resolved]
  - Taste disorder [Recovered/Resolved]
  - Dizziness [Not Recovered/Not Resolved]
  - Procedural pain [Unknown]
  - Head discomfort [Recovered/Resolved]
  - Swelling [Unknown]
  - Oropharyngeal pain [Unknown]
  - Rash [Unknown]
  - Trichorrhexis [Unknown]
  - Alopecia [Unknown]
  - Somnolence [Recovered/Resolved]
  - Haematocrit decreased [Recovered/Resolved]
  - Rash vesicular [Recovered/Resolved]
  - Bradykinesia [Recovered/Resolved]
  - Lactose intolerance [Unknown]
  - Abdominal discomfort [Unknown]
  - Dysgeusia [Recovered/Resolved]
  - Red blood cell count decreased [Unknown]
  - White blood cell count decreased [Unknown]
  - Peripheral swelling [Unknown]
  - Musculoskeletal stiffness [Unknown]

NARRATIVE: CASE EVENT DATE: 20240913
